FAERS Safety Report 8293777-9 (Version None)
Quarter: 2012Q2

REPORT INFORMATION
  Report Type: 
  Country: None (occurrence: None)
  Receive Date: 20120418
  Receipt Date: 20120407
  Transmission Date: 20120825
  Serious: Yes (Hospitalization, Other)
  Sender: FDA-Public Use
  Company Number: TW-PAR PHARMACEUTICAL, INC-2012SCPR004314

PATIENT

DRUGS (1)
  1. BUPROPION HCL [Suspect]
     Indication: PRODUCT USED FOR UNKNOWN INDICATION
     Dosage: 2.85 G, UNKNOWN
     Route: 048

REACTIONS (8)
  - PULSELESS ELECTRICAL ACTIVITY [None]
  - ELECTROCARDIOGRAM QT PROLONGED [None]
  - MENTAL STATUS CHANGES [None]
  - BRADYCARDIA [None]
  - OVERDOSE [None]
  - VENTRICULAR TACHYCARDIA [None]
  - STATUS EPILEPTICUS [None]
  - METABOLIC ACIDOSIS [None]
